FAERS Safety Report 20903335 (Version 2)
Quarter: 2022Q2

REPORT INFORMATION
  Report Type: Spontaneous
  Country: US (occurrence: None)
  Receive Date: 20220601
  Receipt Date: 20220623
  Transmission Date: 20220720
  Serious: No
  Sender: FDA-Public Use
  Company Number: 2022A178207

PATIENT
  Age: 766 Month
  Sex: Female
  Weight: 121.1 kg

DRUGS (1)
  1. BYDUREON BCISE [Suspect]
     Active Substance: EXENATIDE
     Indication: Type 2 diabetes mellitus
     Route: 058
     Dates: start: 2020

REACTIONS (14)
  - Glycosylated haemoglobin increased [Unknown]
  - Mental disorder [Unknown]
  - Emotional disorder [Unknown]
  - Folliculitis [Unknown]
  - Blood glucose increased [Unknown]
  - Fatigue [Unknown]
  - Stress [Unknown]
  - Haemorrhage [Unknown]
  - Injection site haemorrhage [Unknown]
  - Injection site indentation [Unknown]
  - Drug dose omission by device [Unknown]
  - Incorrect dose administered by device [Unknown]
  - Device use issue [Unknown]
  - Device delivery system issue [Unknown]

NARRATIVE: CASE EVENT DATE: 20210301
